FAERS Safety Report 6985810-9 (Version None)
Quarter: 2010Q3

REPORT INFORMATION
  Report Type: 
  Country: None (occurrence: None)
  Receive Date: 20100915
  Receipt Date: 20100901
  Transmission Date: 20110219
  Serious: Yes (Hospitalization, Other)
  Sender: FDA-Public Use
  Company Number: PHHY2010MX58856

PATIENT
  Age: 62 Year
  Sex: Female

DRUGS (4)
  1. ZOLEDRONIC [Suspect]
     Indication: OSTEOPOROSIS
     Dosage: 5 MG
     Route: 042
     Dates: start: 20090101
  2. ZELMAC [Suspect]
     Dosage: 6 MG
  3. CALCITRIOL [Concomitant]
     Dosage: UNK
  4. CALTRATE [Concomitant]
     Dosage: UNK

REACTIONS (4)
  - GOITRE [None]
  - MUSCULOSKELETAL STIFFNESS [None]
  - SURGERY [None]
  - TRACHEAL OBSTRUCTION [None]
